FAERS Safety Report 13878068 (Version 1)
Quarter: 2017Q3

REPORT INFORMATION
  Report Type: Spontaneous
  Country: SA (occurrence: SA)
  Receive Date: 20170817
  Receipt Date: 20170817
  Transmission Date: 20171127
  Serious: Yes (Hospitalization)
  Sender: FDA-Public Use
  Company Number: SA-SA-2017SA149290

PATIENT
  Age: 28 Year
  Sex: Male

DRUGS (1)
  1. LEMTRADA [Suspect]
     Active Substance: ALEMTUZUMAB
     Indication: RELAPSING-REMITTING MULTIPLE SCLEROSIS
     Route: 041
     Dates: start: 201701

REACTIONS (8)
  - Bladder disorder [Unknown]
  - Confusional state [Unknown]
  - Muscular weakness [Unknown]
  - Headache [Unknown]
  - Diplopia [Unknown]
  - Progressive multifocal leukoencephalopathy [Unknown]
  - Central nervous system lesion [Unknown]
  - Pyrexia [Unknown]
